FAERS Safety Report 12865137 (Version 2)
Quarter: 2017Q4

REPORT INFORMATION
  Report Type: Spontaneous
  Country: US (occurrence: US)
  Receive Date: 20161020
  Receipt Date: 20171020
  Transmission Date: 20180320
  Serious: No
  Sender: FDA-Public Use
  Company Number: US-TEVA-625072USA

PATIENT
  Age: 66 Year
  Sex: Female

DRUGS (5)
  1. ESTRADIOL. [Suspect]
     Active Substance: ESTRADIOL
     Dates: start: 201501
  2. HYDROCODONE W/ACETAMINOPHEN [Concomitant]
     Active Substance: ACETAMINOPHEN\HYDROCODONE BITARTRATE
     Indication: MIGRAINE
     Dates: start: 2012
  3. RIZATRIPTAN. [Concomitant]
     Active Substance: RIZATRIPTAN
     Indication: MIGRAINE WITH AURA
     Dosage: ONE AS NEEDED, MAX 2 TABS PER DAY
     Route: 048
     Dates: start: 201501
  4. PREMARIN [Suspect]
     Active Substance: ESTROGENS, CONJUGATED
     Indication: MENOPAUSE
     Dosage: 1.25 MILLIGRAM DAILY;
     Dates: start: 1997
  5. PREMARIN [Suspect]
     Active Substance: ESTROGENS, CONJUGATED
     Dosage: 1.25 MILLIGRAM DAILY;
     Dates: start: 201605

REACTIONS (19)
  - Night sweats [Recovered/Resolved]
  - Headache [Recovered/Resolved]
  - Insomnia [Unknown]
  - Hot flush [Not Recovered/Not Resolved]
  - Anger [Recovered/Resolved]
  - Dizziness [Recovered/Resolved]
  - Feeling hot [Recovered/Resolved]
  - Hyperphagia [Recovered/Resolved]
  - Adverse event [Recovered/Resolved]
  - Aggression [Unknown]
  - Depression [Not Recovered/Not Resolved]
  - Extra dose administered [Unknown]
  - Asthenia [Not Recovered/Not Resolved]
  - Depressed mood [Not Recovered/Not Resolved]
  - Drug ineffective [Unknown]
  - Pain [Not Recovered/Not Resolved]
  - Vomiting in pregnancy [Not Recovered/Not Resolved]
  - Irritability [Recovered/Resolved]
  - Memory impairment [Recovered/Resolved]

NARRATIVE: CASE EVENT DATE: 2015
